FAERS Safety Report 17256047 (Version 1)
Quarter: 2020Q1

REPORT INFORMATION
  Report Type: Spontaneous
  Country: GB (occurrence: GB)
  Receive Date: 20200110
  Receipt Date: 20200110
  Transmission Date: 20200409
  Serious: Yes (Disabling)
  Sender: FDA-Public Use
  Company Number: GB-TEVA-2020-GB-1165317

PATIENT
  Age: 91 Year
  Sex: Female
  Weight: 61 kg

DRUGS (13)
  1. ZOPICLONE [Concomitant]
     Active Substance: ZOPICLONE
     Indication: RESTLESSNESS
     Dosage: NIGHT. SHORT TERM.
     Dates: start: 20191014, end: 20191028
  2. AMOXICILLIN. [Suspect]
     Active Substance: AMOXICILLIN
     Dosage: 1500 MILLIGRAM
     Route: 065
     Dates: start: 20191121, end: 20191126
  3. LAXIDO [Concomitant]
     Active Substance: POLYETHYLENE GLYCOL 3350\POTASSIUM CHLORIDE\SODIUM BICARBONATE\SODIUM CHLORIDE
     Dates: start: 20191028, end: 20191127
  4. BETNOVATE [Concomitant]
     Active Substance: BETAMETHASONE
     Dosage: APPLY AS DIRECTED THINLY.
     Dates: start: 20191205
  5. SODIUM HYDROGEN CARBONATE [Concomitant]
     Active Substance: SODIUM BICARBONATE
     Dates: start: 20190417
  6. RANITIDINE. [Concomitant]
     Active Substance: RANITIDINE
     Dates: start: 20190104
  7. FOLIC ACID. [Concomitant]
     Active Substance: FOLIC ACID
     Dates: start: 20190104
  8. CEFALEXIN [Concomitant]
     Active Substance: CEPHALEXIN
     Route: 065
     Dates: start: 20191001, end: 20191004
  9. PARACETAMOL [Concomitant]
     Active Substance: ACETAMINOPHEN
     Dosage: ONE TO TWO TO BE TAKEN EVERY FOUR TO SI...
     Dates: start: 20190409
  10. LACTULOSE. [Concomitant]
     Active Substance: LACTULOSE
     Dates: start: 20190104
  11. TRIMETHOPRIM. [Concomitant]
     Active Substance: TRIMETHOPRIM
     Dates: start: 20191028, end: 20191031
  12. CIPROFLOXACIN. [Concomitant]
     Active Substance: CIPROFLOXACIN
     Dates: start: 20191006, end: 20191011
  13. E45 [Concomitant]
     Active Substance: LANOLIN\LIGHT MINERAL OIL\PARAFFIN
     Dosage: APPLY TWICE DAILY.
     Route: 061
     Dates: start: 20190104

REACTIONS (2)
  - Blister [Recovering/Resolving]
  - Rash [Unknown]

NARRATIVE: CASE EVENT DATE: 20191205
